FAERS Safety Report 13433984 (Version 2)
Quarter: 2017Q2

REPORT INFORMATION
  Report Type: Spontaneous
  Country: US (occurrence: US)
  Receive Date: 20170412
  Receipt Date: 20170503
  Transmission Date: 20170830
  Serious: Yes (Other)
  Sender: FDA-Public Use
  Company Number: US-009507513-1704USA001035

PATIENT
  Age: 57 Year
  Sex: Female

DRUGS (3)
  1. DULERA [Suspect]
     Active Substance: FORMOTEROL FUMARATE DIHYDRATE\MOMETASONE FUROATE
     Indication: ASTHMA
     Dosage: 2 PUFFS, BID (AM/PM). THERAPY ROUTE: ORAL INHALER.
     Route: 055
     Dates: start: 20150225, end: 201704
  2. DULERA [Suspect]
     Active Substance: FORMOTEROL FUMARATE DIHYDRATE\MOMETASONE FUROATE
     Dosage: 2 PUFFS, BID (AM/PM). THERAPY ROUTE: ORAL INHALER.
     Route: 055
     Dates: start: 201704
  3. VENTOLIN [Concomitant]
     Active Substance: ALBUTEROL SULFATE
     Dosage: UNK, PRN

REACTIONS (5)
  - Drug dose omission [Unknown]
  - Dyspnoea [Recovering/Resolving]
  - Product quality issue [Unknown]
  - Chest discomfort [Recovering/Resolving]
  - Drug use disorder [Unknown]

NARRATIVE: CASE EVENT DATE: 201704
